FAERS Safety Report 13291564 (Version 1)
Quarter: 2017Q1

REPORT INFORMATION
  Report Type: Spontaneous
  Country: US (occurrence: US)
  Receive Date: 20170302
  Receipt Date: 20170302
  Transmission Date: 20170428
  Serious: No
  Sender: FDA-Public Use
  Company Number: US-PERRIGO-16US021884

PATIENT
  Sex: Male

DRUGS (2)
  1. LOPERAMIDE HYDROCHLORIDE. [Suspect]
     Active Substance: LOPERAMIDE HYDROCHLORIDE
     Indication: PROPHYLAXIS
     Dosage: 4 MG, PRN
     Route: 048
     Dates: end: 20161114
  2. LOPERAMIDE HYDROCHLORIDE. [Suspect]
     Active Substance: LOPERAMIDE HYDROCHLORIDE
     Dosage: 8 MG, SINGLE
     Route: 048
     Dates: start: 20161115, end: 20161115

REACTIONS (3)
  - Accidental overdose [Recovered/Resolved]
  - Expired product administered [Recovered/Resolved]
  - Off label use [Unknown]

NARRATIVE: CASE EVENT DATE: 20161115
